FAERS Safety Report 4964107-2 (Version None)
Quarter: 2006Q1

REPORT INFORMATION
  Report Type: 
  Country: None (occurrence: None)
  Receive Date: 20060330
  Receipt Date: 20060313
  Transmission Date: 20060701
  Serious: No
  Sender: FDA-Public Use
  Company Number: US2000602005228

PATIENT
  Age: 55 Year
  Sex: Female

DRUGS (5)
  1. CYMBALTA [Suspect]
     Dosage: ORAL
     Route: 048
  2. PERCOCET [Concomitant]
  3. FENTANYL [Concomitant]
  4. NEURONTIN [Concomitant]
  5. PREGABALIN (PREGABALIN) [Concomitant]

REACTIONS (1)
  - SEDATION [None]
